FAERS Safety Report 16750516 (Version 1)
Quarter: 2019Q3

REPORT INFORMATION
  Report Type: Spontaneous
  Country: US (occurrence: US)
  Receive Date: 20190710
  Receipt Date: 20190710
  Transmission Date: 20191005
  Serious: Yes (Hospitalization)
  Sender: FDA-Public Use
  Company Number: None

PATIENT
  Age: 64 Year
  Sex: Female

DRUGS (7)
  1. IMODIUM [Concomitant]
     Active Substance: LOPERAMIDE HYDROCHLORIDE
  2. KLONOPIN [Concomitant]
     Active Substance: CLONAZEPAM
  3. VITAMIN D [Concomitant]
     Active Substance: VITAMIN D NOS
  4. CITRACAL [Concomitant]
     Active Substance: CALCIUM CITRATE
  5. ZOVIRAX [Concomitant]
     Active Substance: ACYCLOVIR
  6. TACROLIMUS, 0.5MG [Suspect]
     Active Substance: TACROLIMUS
     Indication: TRANSPLANT
     Route: 048
     Dates: start: 20150324
  7. URSODIOL. [Concomitant]
     Active Substance: URSODIOL

REACTIONS (3)
  - Infection [None]
  - Drug interaction [None]
  - Dehydration [None]

NARRATIVE: CASE EVENT DATE: 20190615
